FAERS Safety Report 24543247 (Version 3)
Quarter: 2025Q3

REPORT INFORMATION
  Report Type: Report from Study
  Country: US (occurrence: US)
  Receive Date: 20241024
  Receipt Date: 20250802
  Transmission Date: 20251021
  Serious: Yes (Hospitalization, Other)
  Sender: ALEXION PHARMACEUTICALS
  Company Number: US-AstraZeneca-CH-00719315AP

PATIENT
  Age: 57 Year
  Sex: Female

DRUGS (5)
  1. BYETTA [Suspect]
     Active Substance: EXENATIDE
     Route: 065
  2. BYDUREON BCISE [Suspect]
     Active Substance: EXENATIDE
     Route: 065
  3. FORTEO [Concomitant]
     Active Substance: TERIPARATIDE
     Route: 065
  4. LOVENOX [Concomitant]
     Active Substance: ENOXAPARIN SODIUM
     Route: 065
  5. WARFARIN [Concomitant]
     Active Substance: WARFARIN
     Route: 065

REACTIONS (22)
  - Cardiac failure congestive [Unknown]
  - Tooth loss [Unknown]
  - Craniofacial fracture [Unknown]
  - Upper limb fracture [Unknown]
  - Rotator cuff syndrome [Unknown]
  - Rib fracture [Unknown]
  - Loss of consciousness [Unknown]
  - Spinal fracture [Unknown]
  - Ankle fracture [Unknown]
  - Fall [Unknown]
  - Osteogenesis imperfecta [Unknown]
  - Dizziness [Unknown]
  - Orthostatic hypotension [Unknown]
  - Drug hypersensitivity [Unknown]
  - Weight decreased [Unknown]
  - Nervousness [Unknown]
  - Memory impairment [Unknown]
  - Abdominal discomfort [Unknown]
  - Dyspnoea [Unknown]
  - Osteoarthritis [Unknown]
  - Product dose omission issue [Unknown]
  - Wrong technique in device usage process [Unknown]

NARRATIVE: CASE EVENT DATE: 20201106
